FAERS Safety Report 12474402 (Version 1)
Quarter: 2016Q2

REPORT INFORMATION
  Report Type: Spontaneous
  Country: US (occurrence: None)
  Receive Date: 20160616
  Receipt Date: 20160616
  Transmission Date: 20160815
  Serious: Yes (Disabling)
  Sender: FDA-Public Use
  Company Number: None

PATIENT
  Age: 88 Year
  Sex: Female
  Weight: 62.14 kg

DRUGS (17)
  1. ASPIRIN. [Concomitant]
     Active Substance: ASPIRIN
  2. VITAMIN E [Concomitant]
     Active Substance: .ALPHA.-TOCOPHEROL
  3. PROZAC (FLUOXETINE HCL) [Concomitant]
  4. IBUPROPHEN [Concomitant]
     Active Substance: IBUPROFEN
  5. B100 [Concomitant]
     Active Substance: MINERALS\VITAMINS
  6. VIT A [Concomitant]
  7. SEA KELP [Concomitant]
  8. FOLIC ACID. [Concomitant]
     Active Substance: FOLIC ACID
  9. ESTROPIPATE. [Concomitant]
     Active Substance: ESTROPIPATE
  10. LUTEIN [Concomitant]
     Active Substance: LUTEIN
  11. VITAMIN D [Concomitant]
     Active Substance: CHOLECALCIFEROL
  12. NAPROXEN. [Concomitant]
     Active Substance: NAPROXEN
  13. SR VIT/MIN [Concomitant]
  14. LEVAQUIN [Suspect]
     Active Substance: LEVOFLOXACIN
     Indication: PNEUMONIA
     Route: 048
     Dates: start: 20160118, end: 20160127
  15. VITAMIN B12 [Concomitant]
     Active Substance: CYANOCOBALAMIN
  16. VITAMIN C [Concomitant]
     Active Substance: ASCORBIC ACID
  17. FISH OIL [Concomitant]
     Active Substance: FISH OIL

REACTIONS (9)
  - Fatigue [None]
  - Constipation [None]
  - Tendonitis [None]
  - Dizziness [None]
  - Presyncope [None]
  - Condition aggravated [None]
  - Vision blurred [None]
  - Neuropathy peripheral [None]
  - Depressed level of consciousness [None]

NARRATIVE: CASE EVENT DATE: 20160121
